FAERS Safety Report 14239856 (Version 4)
Quarter: 2018Q3

REPORT INFORMATION
  Report Type: Report from Study
  Country: DE (occurrence: DE)
  Receive Date: 20171130
  Receipt Date: 20180827
  Transmission Date: 20181010
  Serious: Yes (Hospitalization)
  Sender: FDA-Public Use
  Company Number: DE-ACTELION-A-CH2017-157727

PATIENT
  Age: 54 Year
  Sex: Female
  Weight: 105 kg

DRUGS (34)
  1. BLINDED PLACEBO [Suspect]
     Active Substance: INVESTIGATIONAL PRODUCT
     Dosage: 200 ?G, BID
     Route: 048
     Dates: start: 20160517, end: 20161130
  2. ADCIRCA [Suspect]
     Active Substance: TADALAFIL
     Indication: PULMONARY ARTERIAL HYPERTENSION
     Dosage: 40 MG, OD
     Route: 048
     Dates: start: 20160502
  3. UPTRAVI [Suspect]
     Active Substance: SELEXIPAG
     Dosage: 1200 ?G, BID
     Route: 048
     Dates: start: 20170104, end: 20170110
  4. UPTRAVI [Suspect]
     Active Substance: SELEXIPAG
     Dosage: 1400 ?G, BID
     Route: 048
     Dates: start: 20170111, end: 20170117
  5. OXYGEN. [Concomitant]
     Active Substance: OXYGEN
     Dosage: 2.4 L, QD
     Dates: start: 20160726, end: 20170308
  6. HCT [Concomitant]
     Active Substance: HYDROCHLOROTHIAZIDE
     Dosage: 25 MG, QD
     Dates: start: 20160601, end: 20160615
  7. IBEROGAST [Concomitant]
     Active Substance: HERBALS
     Indication: DIARRHOEA
     Dosage: UNK DROP, PRN
     Dates: start: 20170111, end: 20170115
  8. BLINDED SELEXIPAG [Suspect]
     Active Substance: SELEXIPAG
     Indication: PULMONARY ARTERIAL HYPERTENSION
     Dosage: 1600 ?G, BID
     Route: 048
     Dates: start: 20161130, end: 20161130
  9. UPTRAVI [Suspect]
     Active Substance: SELEXIPAG
     Indication: PULMONARY ARTERIAL HYPERTENSION
     Dosage: 1200 ?G, BID
     Route: 048
     Dates: end: 20170803
  10. UPTRAVI [Suspect]
     Active Substance: SELEXIPAG
     Dosage: 1000 ?G, BID
     Route: 048
     Dates: start: 20161228, end: 20170103
  11. OXYGEN. [Concomitant]
     Active Substance: OXYGEN
     Dosage: 2 L, QD
     Dates: start: 201603, end: 20160725
  12. ELIQUIS [Concomitant]
     Active Substance: APIXABAN
     Indication: THROMBOSIS PROPHYLAXIS
     Dosage: UNK
     Dates: start: 201512
  13. CLEXANE [Concomitant]
     Active Substance: ENOXAPARIN SODIUM
     Indication: THROMBOSIS PROPHYLAXIS
     Dosage: 1 ML, PRN
     Dates: start: 20160411, end: 20160423
  14. BLINDED PLACEBO [Suspect]
     Active Substance: INVESTIGATIONAL PRODUCT
     Indication: PULMONARY ARTERIAL HYPERTENSION
     Dosage: 1600 ?G, BID
     Route: 048
     Dates: start: 20161130, end: 20161130
  15. IBUPROFEN. [Concomitant]
     Active Substance: IBUPROFEN
     Indication: HEADACHE
     Dosage: 400 MG, PRN
     Dates: start: 2010, end: 20160725
  16. ELIQUIS [Concomitant]
     Active Substance: APIXABAN
     Dosage: 5 MG, BID
     Dates: start: 20160421, end: 20161029
  17. NOVALGIN (METAMIZOLE SODIUM) [Concomitant]
     Active Substance: METAMIZOLE SODIUM
     Indication: HEADACHE
     Dosage: 20 DROP, PRN
     Dates: start: 20160725
  18. MACITENTAN [Suspect]
     Active Substance: MACITENTAN
     Indication: PULMONARY ARTERIAL HYPERTENSION
     Dosage: 10 MG, OD
     Route: 048
     Dates: start: 20160502
  19. UPTRAVI [Suspect]
     Active Substance: SELEXIPAG
     Dosage: 200 ?G, BID
     Route: 048
     Dates: start: 20161130, end: 20161206
  20. UPTRAVI [Suspect]
     Active Substance: SELEXIPAG
     Dosage: 400 ?G, BID
     Route: 048
     Dates: start: 20161207, end: 20161213
  21. MACITENTAN [Suspect]
     Active Substance: MACITENTAN
     Indication: PULMONARY ARTERIAL HYPERTENSION
     Dosage: 10 MG, OD
     Route: 048
     Dates: start: 20160502
  22. UPTRAVI [Suspect]
     Active Substance: SELEXIPAG
     Dosage: 600 ?G, BID
     Route: 048
     Dates: start: 20161214, end: 20161220
  23. UPTRAVI [Suspect]
     Active Substance: SELEXIPAG
     Dosage: 800 ?G, BID
     Route: 048
     Dates: start: 20161221, end: 20161227
  24. KLIMAKTOPLANT [Concomitant]
     Dosage: UNK
     Dates: start: 201607
  25. HCT [Concomitant]
     Active Substance: HYDROCHLOROTHIAZIDE
     Dosage: 12.5 MG, QD
     Dates: start: 20160616, end: 20170228
  26. ELIQUIS [Concomitant]
     Active Substance: APIXABAN
     Dosage: 5 MG, BID
     Dates: start: 201612
  27. RAMIPRIL. [Concomitant]
     Active Substance: RAMIPRIL
     Indication: OEDEMA PERIPHERAL
     Dosage: 2.5 MG, OD
     Dates: start: 201410
  28. NOVALGIN (METAMIZOLE SODIUM) [Concomitant]
     Active Substance: METAMIZOLE SODIUM
     Indication: BACK PAIN
  29. BLINDED SELEXIPAG [Suspect]
     Active Substance: SELEXIPAG
     Dosage: 200 ?G, BID
     Route: 048
     Dates: start: 20160517, end: 20161130
  30. HCT [Concomitant]
     Active Substance: HYDROCHLOROTHIAZIDE
     Indication: OEDEMA PERIPHERAL
     Dosage: 50 MG, OD
     Dates: start: 201504, end: 20180531
  31. TOREM [Concomitant]
     Active Substance: TORSEMIDE
     Indication: OEDEMA PERIPHERAL
     Dosage: UNK
     Dates: start: 20170801
  32. IBUPROFEN. [Concomitant]
     Active Substance: IBUPROFEN
     Indication: BACK PAIN
  33. OXYGEN. [Concomitant]
     Active Substance: OXYGEN
     Indication: RESPIRATORY FAILURE
     Dosage: UNK
     Dates: start: 20170306
  34. CEFUROXIME AXETIL. [Concomitant]
     Active Substance: CEFUROXIME AXETIL
     Indication: RESPIRATORY TRACT INFECTION
     Dosage: UNK
     Dates: start: 20161017, end: 20161020

REACTIONS (6)
  - Dyspepsia [Unknown]
  - Oxygen consumption increased [Recovered/Resolved with Sequelae]
  - Pulmonary veno-occlusive disease [Recovered/Resolved with Sequelae]
  - Pulmonary arterial hypertension [Recovered/Resolved]
  - Condition aggravated [Recovered/Resolved with Sequelae]
  - Hospitalisation [Not Recovered/Not Resolved]

NARRATIVE: CASE EVENT DATE: 20170730
